FAERS Safety Report 11805194 (Version 1)
Quarter: 2015Q4

REPORT INFORMATION
  Report Type: Spontaneous
  Country: KR (occurrence: KR)
  Receive Date: 20151206
  Receipt Date: 20151206
  Transmission Date: 20160305
  Serious: Yes (Hospitalization)
  Sender: FDA-Public Use
  Company Number: KR-MYLANLABS-2015M1043187

PATIENT

DRUGS (2)
  1. ETOPOSIDE. [Suspect]
     Active Substance: ETOPOSIDE
     Indication: SMALL CELL LUNG CANCER EXTENSIVE STAGE
     Dosage: 2 INFUSIONS OF 120 MG/M2 ETOPOSIDE IN 1,000 ML OF 0.9% NACL EACH ADMIN OVER 120MIN ON DAY 1
  2. CISPLATIN. [Suspect]
     Active Substance: CISPLATIN
     Indication: SMALL CELL LUNG CANCER EXTENSIVE STAGE
     Dosage: 60 MG/M2 INFUSED OVER 60 MIN ON DAY 1 OF A 21-DAY CYCLE

REACTIONS (1)
  - Pneumonia [Recovered/Resolved]
